FAERS Safety Report 18182345 (Version 1)
Quarter: 2020Q3

REPORT INFORMATION
  Report Type: Spontaneous
  Country: US (occurrence: US)
  Receive Date: 20200821
  Receipt Date: 20200821
  Transmission Date: 20201103
  Serious: No
  Sender: FDA-Public Use
  Company Number: US-VERITY PHARMACEUTICALS, INC.-2020VTY00296

PATIENT
  Age: 8 Year
  Sex: Female

DRUGS (2)
  1. TRIPTORELIN PAMOATE [Suspect]
     Active Substance: TRIPTORELIN PAMOATE
     Dosage: UNK, SINGLE
     Route: 030
     Dates: start: 20190314, end: 20190314
  2. TRIPTORELIN PAMOATE [Suspect]
     Active Substance: TRIPTORELIN PAMOATE
     Dosage: UNK, SINGLE
     Route: 030

REACTIONS (3)
  - Influenza [Unknown]
  - Hot flush [Unknown]
  - Streptococcal infection [Unknown]

NARRATIVE: CASE EVENT DATE: 20190314
